FAERS Safety Report 8334466-1 (Version None)
Quarter: 2012Q2

REPORT INFORMATION
  Report Type: 
  Country: None (occurrence: None)
  Receive Date: 20120503
  Receipt Date: 20120425
  Transmission Date: 20120825
  Serious: Yes (Other)
  Sender: FDA-Public Use
  Company Number: PHHY2012BR028048

PATIENT
  Sex: Female

DRUGS (4)
  1. GILENYA [Suspect]
     Dosage: 1 DF, A DAY
     Route: 048
     Dates: start: 20120330
  2. IBUPROFEN [Concomitant]
     Indication: PAIN
     Dosage: 600 MG, Q4H
  3. GILENYA [Suspect]
     Indication: MULTIPLE SCLEROSIS
     Dosage: 1 DF, DAILY
     Route: 048
     Dates: start: 20120311
  4. CALCIUM CARBONATE W/VITAMIN D NOS [Concomitant]
     Dosage: 1 DF, PER DAY

REACTIONS (5)
  - VISION BLURRED [None]
  - HYPOKINESIA [None]
  - SYNCOPE [None]
  - SENSATION OF HEAVINESS [None]
  - TREMOR [None]
